FAERS Safety Report 8251825-6 (Version None)
Quarter: 2012Q1

REPORT INFORMATION
  Report Type: 
  Country: None (occurrence: None)
  Receive Date: 20120321
  Receipt Date: 20110623
  Transmission Date: 20120608
  Serious: Yes (Other)
  Sender: FDA-Public Use
  Company Number: PHHY2011US56775

PATIENT
  Age: 60 Year
  Sex: Male

DRUGS (2)
  1. ZORTRESS [Suspect]
     Indication: RENAL TRANSPLANT
     Dosage: 0.75, BID, ORAL
     Route: 048
     Dates: start: 20110613
  2. PROGRAF [Concomitant]

REACTIONS (2)
  - OEDEMA PERIPHERAL [None]
  - EPISTAXIS [None]
